FAERS Safety Report 6324454-9 (Version None)
Quarter: 2009Q3

REPORT INFORMATION
  Report Type: 
  Country: None (occurrence: None)
  Receive Date: 20090824
  Receipt Date: 20090511
  Transmission Date: 20100115
  Serious: No
  Sender: FDA-Public Use
  Company Number: US-ABBOTT-09P-163-0573090-00

PATIENT
  Sex: Female
  Weight: 90.8 kg

DRUGS (6)
  1. NIASPAN [Suspect]
     Indication: BLOOD CHOLESTEROL ABNORMAL
     Dosage: DAILY AT BEDTIME
     Route: 048
     Dates: start: 20090506, end: 20090508
  2. ASPIRIN [Concomitant]
     Indication: PROPHYLAXIS
     Dosage: DAILY AT BEDTIME
     Route: 048
  3. FISH OIL [Concomitant]
     Indication: BLOOD CHOLESTEROL ABNORMAL
     Route: 048
  4. LEXAPRO [Concomitant]
     Indication: DEPRESSION
     Route: 048
  5. LEXAPRO [Concomitant]
     Indication: ANXIETY
  6. PREVACID [Concomitant]
     Indication: GASTROOESOPHAGEAL REFLUX DISEASE
     Route: 048

REACTIONS (3)
  - CONTUSION [None]
  - MYALGIA [None]
  - NODULE ON EXTREMITY [None]
